FAERS Safety Report 20661557 (Version 1)
Quarter: 2022Q2

REPORT INFORMATION
  Report Type: Spontaneous
  Country: US (occurrence: US)
  Receive Date: 20220401
  Receipt Date: 20220401
  Transmission Date: 20220721
  Serious: No
  Sender: FDA-Public Use
  Company Number: US-ALLERGAN-2144002US

PATIENT
  Sex: Male

DRUGS (1)
  1. DURYSTA [Suspect]
     Active Substance: BIMATOPROST
     Indication: Open angle glaucoma
     Dosage: 0.01 MG, SINGLE
     Route: 031
     Dates: start: 202108, end: 202108

REACTIONS (2)
  - Corneal oedema [Not Recovered/Not Resolved]
  - Device issue [Unknown]
